FAERS Safety Report 17041529 (Version 1)
Quarter: 2019Q4

REPORT INFORMATION
  Report Type: Spontaneous
  Country: GB (occurrence: GB)
  Receive Date: 20191118
  Receipt Date: 20191118
  Transmission Date: 20200122
  Serious: Yes (Other)
  Sender: FDA-Public Use
  Company Number: GB-TEVA-2019-GB-1138080

PATIENT
  Age: 52 Year
  Sex: Female
  Weight: 80.73 kg

DRUGS (1)
  1. NAPROXEN. [Suspect]
     Active Substance: NAPROXEN
     Dosage: 500 MILLLIGRAM
     Route: 048
     Dates: start: 20180708, end: 20180708

REACTIONS (5)
  - Dizziness [Recovered/Resolved]
  - Rash erythematous [Recovered/Resolved]
  - Dyspnoea [Unknown]
  - Confusional state [Recovered/Resolved]
  - Abdominal pain [Recovered/Resolved]

NARRATIVE: CASE EVENT DATE: 20180708
